FAERS Safety Report 4883283-3 (Version None)
Quarter: 2006Q1

REPORT INFORMATION
  Report Type: 
  Country: None (occurrence: None)
  Receive Date: 20060113
  Receipt Date: 20060104
  Transmission Date: 20060701
  Serious: Yes (Other)
  Sender: FDA-Public Use
  Company Number: 13182

PATIENT
  Sex: Female

DRUGS (4)
  1. MAXTREX [Suspect]
     Indication: PSORIASIS
     Dosage: 5 MG WEEKLY
  2. CARBAMAZEPINE [Concomitant]
  3. CYPROTERONE ACETATE [Concomitant]
  4. HORMONE REPLACEMENT THERAPY [Concomitant]

REACTIONS (1)
  - OPHTHALMOPLEGIA [None]
